FAERS Safety Report 8763807 (Version 2)
Quarter: 2012Q4

REPORT INFORMATION
  Report Type: Report from Study
  Country: JP (occurrence: JP)
  Receive Date: 20120831
  Receipt Date: 20120914
  Transmission Date: 20130627
  Serious: Yes (Death)
  Sender: FDA-Public Use
  Company Number: JP-PFIZER INC-2012212215

PATIENT
  Age: 74 Year
  Sex: Female
  Weight: 38 kg

DRUGS (19)
  1. CRIZOTINIB [Suspect]
     Indication: NON-SMALL CELL LUNG CANCER
     Dosage: 250 mg, 2x/day
     Route: 048
     Dates: start: 20120428, end: 20120509
  2. LOXONIN [Concomitant]
     Dosage: 60 mg, 3x/day
     Route: 048
     Dates: end: 20120506
  3. PURSENNID [Concomitant]
     Dosage: 24 mg, 1x/day
     Route: 048
     Dates: end: 20120506
  4. MAGNESIUM OXIDE [Concomitant]
     Dosage: 660 mg, 3x/day
     Route: 048
     Dates: end: 20120506
  5. TAKEPRON [Concomitant]
     Dosage: 30 mg, 1x/day
     Route: 048
     Dates: end: 20120506
  6. MUCOSOLVAN [Concomitant]
     Dosage: 15 mg, 3x/day
     Route: 048
     Dates: end: 20120508
  7. LOXOPROFEN [Concomitant]
     Dosage: 180 mg, 1x/day
     Route: 048
     Dates: start: 20120428, end: 20120504
  8. LOXOPROFEN [Concomitant]
     Dosage: 60 mg, 4x/day
     Route: 048
     Dates: start: 20120505, end: 20120508
  9. LOXOPROFEN [Concomitant]
     Dosage: 1 DF, as needed
     Route: 048
     Dates: start: 20120427, end: 20120428
  10. MORPHINE HYDROCHLORIDE [Concomitant]
     Dosage: 10 DF, as needed
     Dates: start: 20120429, end: 20120429
  11. NAUZELIN [Concomitant]
     Dosage: 1 DF, as needed
     Dates: start: 20120501, end: 20120501
  12. NEW LECICARBON [Concomitant]
     Dosage: 1 DF, UNK
     Dates: start: 20120504, end: 20120504
  13. MYSER [Concomitant]
     Dosage: UNK
     Dates: start: 20120427, end: 20120427
  14. MYSER [Concomitant]
     Dosage: UNK
     Dates: start: 20120501, end: 20120501
  15. HIRUDOID [Concomitant]
     Dosage: UNK
     Dates: start: 20120427, end: 20120427
  16. INDOMETACIN [Concomitant]
     Dosage: UNK
     Dates: start: 20120427, end: 20120427
  17. SANCOBA [Concomitant]
     Dosage: UNK
     Dates: start: 20120428, end: 20120428
  18. CATALIN [Concomitant]
     Dosage: UNK
     Dates: start: 20120428, end: 20120428
  19. DICLOFENAC SODIUM [Concomitant]
     Dosage: 5 DF, UNK
     Dates: start: 20120430, end: 20120430

REACTIONS (1)
  - Pneumonia aspiration [Fatal]
